FAERS Safety Report 10877695 (Version 1)
Quarter: 2015Q1

REPORT INFORMATION
  Report Type: Spontaneous
  Country: US (occurrence: None)
  Receive Date: 20150225
  Receipt Date: 20150225
  Transmission Date: 20150721
  Serious: No
  Sender: FDA-Public Use
  Company Number: None

PATIENT
  Age: 54 Year
  Sex: Female

DRUGS (10)
  1. ATORVASTATIN [Concomitant]
     Active Substance: ATORVASTATIN
  2. REBIF [Concomitant]
     Active Substance: INTERFERON BETA-1A
  3. VITAMIN B [Concomitant]
     Active Substance: VITAMIN B
  4. LISINOPRIL. [Concomitant]
     Active Substance: LISINOPRIL
  5. AMPYRA [Suspect]
     Active Substance: DALFAMPRIDINE
     Indication: MULTIPLE SCLEROSIS
     Route: 048
     Dates: start: 201312
  6. PROPRANOLOL [Concomitant]
     Active Substance: PROPRANOLOL\PROPRANOLOL HYDROCHLORIDE
  7. ASA [Concomitant]
     Active Substance: ASPIRIN
  8. SUMATRIPTAN. [Concomitant]
     Active Substance: SUMATRIPTAN
  9. VITAMIN D3 [Concomitant]
     Active Substance: CHOLECALCIFEROL
  10. FIBER [Concomitant]
     Active Substance: PSYLLIUM HUSK

REACTIONS (1)
  - Urinary tract infection [None]

NARRATIVE: CASE EVENT DATE: 20141219
